FAERS Safety Report 4295855-8 (Version None)
Quarter: 2004Q1

REPORT INFORMATION
  Report Type: 
  Country: None (occurrence: None)
  Receive Date: 20040212
  Receipt Date: 20040129
  Transmission Date: 20041129
  Serious: Yes (Other)
  Sender: FDA-Public Use
  Company Number: JP-JNJFOC-20040201927

PATIENT
  Age: 68 Year
  Sex: Female

DRUGS (4)
  1. RISPERDAL [Suspect]
     Indication: DELIRIUM
     Dosage: 0.5 MG, IN 1 DAY, ORAL
     Route: 048
     Dates: start: 20040101, end: 20040129
  2. MIANSERIN HYDROCHLORIDE (MIANSERIN HYDROCHLORIDE) [Suspect]
     Dosage: ORAL
     Route: 048
  3. NICERGOLINE (NICERGOLINE) [Concomitant]
  4. LITHIUM CARBONATE [Concomitant]

REACTIONS (3)
  - DRUG INTERACTION [None]
  - HEPATIC FUNCTION ABNORMAL [None]
  - NEUTROPENIA [None]
